FAERS Safety Report 12139957 (Version 2)
Quarter: 2016Q1

REPORT INFORMATION
  Report Type: Spontaneous
  Country: CN (occurrence: CN)
  Receive Date: 20160303
  Receipt Date: 20160321
  Transmission Date: 20160526
  Serious: Yes (Hospitalization)
  Sender: FDA-Public Use
  Company Number: CN-ROCHE-1719080

PATIENT
  Age: 25 Year
  Sex: Male

DRUGS (1)
  1. CEFTRIAXONE. [Suspect]
     Active Substance: CEFTRIAXONE
     Indication: PROPHYLAXIS
     Route: 042
     Dates: start: 20130807, end: 20130809

REACTIONS (4)
  - Calculus urinary [Recovered/Resolved]
  - Postrenal failure [Recovered/Resolved]
  - Pyelonephritis [Recovered/Resolved]
  - Overdose [Unknown]
